FAERS Safety Report 7176746-1 (Version None)
Quarter: 2010Q4

REPORT INFORMATION
  Report Type: 
  Country: None (occurrence: None)
  Receive Date: 20101207
  Receipt Date: 20101116
  Transmission Date: 20110411
  Serious: Yes (Other)
  Sender: FDA-Public Use
  Company Number: 1022556-2010-00079

PATIENT
  Sex: Male

DRUGS (1)
  1. GOLD BOND ULTIMATE HEALING FOOT CREAM 4OZ [Suspect]
     Dosage: TOPICAL/MONTHS
     Route: 061

REACTIONS (3)
  - APPLICATION SITE PAIN [None]
  - BLISTER [None]
  - THERMAL BURN [None]
